FAERS Safety Report 9524136 (Version 1)
Quarter: 2013Q1

REPORT INFORMATION
  Report Type: Spontaneous
  Country: US (occurrence: None)
  Receive Date: 20130305
  Receipt Date: 20130305
  Transmission Date: 20140127
  Serious: Yes (Other)
  Sender: FDA-Public Use
  Company Number: 163-21880-12022560

PATIENT
  Age: 59 Year
  Sex: Male

DRUGS (2)
  1. REVLIMID (LENALIDOMIDE) (25 MILLIGRAM, CAPSULES) [Suspect]
     Indication: PLASMA CELL MYELOMA
     Dosage: 1 WEEK OFF.
     Dates: start: 20100824, end: 20120220
  2. DECADRON (DEXAMETHASONE) [Concomitant]

REACTIONS (1)
  - Plasma cell myeloma [None]
